FAERS Safety Report 4642228-1 (Version None)
Quarter: 2005Q2

REPORT INFORMATION
  Report Type: 
  Country: None (occurrence: None)
  Receive Date: 20050421
  Receipt Date: 20050412
  Transmission Date: 20051028
  Serious: Yes (Death, Hospitalization, Other)
  Sender: FDA-Public Use
  Company Number: 01-11-0616

PATIENT
  Age: 58 Year
  Sex: Female

DRUGS (16)
  1. CLOZAPINE [Suspect]
     Indication: SCHIZOPHRENIA
     Dosage: 625MG QD ORAL
     Route: 048
     Dates: start: 20000101, end: 20050301
  2. GLUCOPHAGE [Concomitant]
  3. ACTOS [Concomitant]
  4. PREVACID [Concomitant]
  5. CELEBREX [Concomitant]
  6. PREMPRO [Concomitant]
  7. ZOLOFT [Concomitant]
  8. TRIMOX [Concomitant]
  9. FLUOCINONIDE [Concomitant]
  10. HYDROXYZINE HYDROCHLORIDE [Concomitant]
  11. SUCRALFATE [Concomitant]
  12. PROPOXYPHENE NAPSYLATE AND ACETAMINOPHEN [Concomitant]
  13. VIOXX [Concomitant]
  14. BENZONATATE [Concomitant]
  15. DOCUSATE SODIUM [Concomitant]
  16. CLONIDINE [Concomitant]

REACTIONS (1)
  - BREAST CANCER [None]
